FAERS Safety Report 9067132 (Version 2)
Quarter: 2013Q2

REPORT INFORMATION
  Report Type: Spontaneous
  Country: US (occurrence: US)
  Receive Date: 20130214
  Receipt Date: 20130617
  Transmission Date: 20140414
  Serious: Yes (Hospitalization)
  Sender: FDA-Public Use
  Company Number: US-BAYER-2013-019252

PATIENT
  Age: 50 Year
  Sex: Female

DRUGS (11)
  1. OCELLA [Suspect]
  2. YAZ [Suspect]
  3. LISINOPRILHYDROCHLOROTHIAZIDE RATIOPHARM [Concomitant]
     Dosage: 20-12.5, 1 TABLET PER DAY
  4. SYNTHROID [Concomitant]
     Dosage: 75 MCG IN THE MORNING
  5. ZOFRAN [Concomitant]
     Dosage: 4 MG, EVERY 6-8 HOURS AS NEEDED
  6. ALBUTEROL SULFATE [Concomitant]
     Dosage: 2 PUFFS AS NEEDED EVERY 4 HOURS
     Route: 045
  7. FLOVENT HFA [Concomitant]
     Dosage: 220 MCG/ACT, 1 PUFF BID
     Route: 045
  8. AZITHROMYCIN [Concomitant]
     Dosage: 250 MG, UNK
     Dates: start: 20121025
  9. AZITHROMYCIN [Concomitant]
     Dosage: 250 MG, UNK
     Dates: start: 20121207
  10. LEVOFLOXACIN [Concomitant]
     Dosage: 500 MG, UNK
     Dates: start: 20121102
  11. METHYLPREDNISOLONE [Concomitant]
     Dosage: 4 MG, UNK
     Dates: start: 20121102

REACTIONS (2)
  - Pulmonary embolism [Recovered/Resolved]
  - Deep vein thrombosis [Recovering/Resolving]
